FAERS Safety Report 12377037 (Version 1)
Quarter: 2016Q2

REPORT INFORMATION
  Report Type: Spontaneous
  Country: US (occurrence: US)
  Receive Date: 20160517
  Receipt Date: 20160517
  Transmission Date: 20160815
  Serious: Yes (Hospitalization)
  Sender: FDA-Public Use
  Company Number: US-BAYER-2016-092249

PATIENT
  Age: 4 Year

DRUGS (1)
  1. OXYMETAZOLINE HYDROCHLORIDE. [Suspect]
     Active Substance: OXYMETAZOLINE HYDROCHLORIDE
     Indication: NASOPHARYNGITIS
     Dosage: 1 DF, ONCE
     Route: 045
     Dates: start: 200811, end: 200811

REACTIONS (3)
  - Brain injury [None]
  - Cardio-respiratory arrest [Recovered/Resolved]
  - Drug administration error [None]

NARRATIVE: CASE EVENT DATE: 200811
